FAERS Safety Report 6747148-4 (Version None)
Quarter: 2010Q2

REPORT INFORMATION
  Report Type: 
  Country: None (occurrence: None)
  Receive Date: 20100528
  Receipt Date: 20100521
  Transmission Date: 20101027
  Serious: Yes (Other)
  Sender: FDA-Public Use
  Company Number: US-PFIZER INC-2010040075

PATIENT
  Sex: Female
  Weight: 83.9 kg

DRUGS (6)
  1. LIPITOR [Suspect]
     Indication: BLOOD CHOLESTEROL INCREASED
     Dosage: 20 MG, 1X/DAY
     Route: 048
     Dates: start: 20070918, end: 20100317
  2. NEURONTIN [Suspect]
     Indication: PAIN IN EXTREMITY
     Dosage: TWO TO THREE TIMES DAILY
  3. VOLTAREN [Suspect]
     Indication: ANTIINFLAMMATORY THERAPY
     Dosage: UNK
  4. MOBIC [Suspect]
  5. DARVOCET [Suspect]
  6. SYNTHROID [Concomitant]
     Indication: HYPOTHYROIDISM

REACTIONS (7)
  - ARTHRALGIA [None]
  - DRUG INEFFECTIVE [None]
  - FIBROMYALGIA [None]
  - HEPATIC ENZYME INCREASED [None]
  - MUSCLE SWELLING [None]
  - MYALGIA [None]
  - SURGERY [None]
